FAERS Safety Report 18724998 (Version 1)
Quarter: 2021Q1

REPORT INFORMATION
  Report Type: Spontaneous
  Country: US (occurrence: US)
  Receive Date: 20210111
  Receipt Date: 20210111
  Transmission Date: 20210419
  Serious: No
  Sender: FDA-Public Use
  Company Number: US-BIOVITRUM-2021US0241

PATIENT
  Sex: Female
  Weight: 4 kg

DRUGS (4)
  1. GERBER SOOTHE VIT D?PROBIOTIC [Concomitant]
  2. SYNAGIS [Suspect]
     Active Substance: PALIVIZUMAB
     Indication: PREMATURE BABY
     Dosage: 50MG/0.5ML VL LIQUID
     Route: 030
     Dates: start: 20201211
  3. VITAMIN D?400 [Concomitant]
  4. FAMOTIDINE. [Concomitant]
     Active Substance: FAMOTIDINE

REACTIONS (2)
  - Diarrhoea [Unknown]
  - Pyrexia [Unknown]
